FAERS Safety Report 25120844 (Version 4)
Quarter: 2025Q2

REPORT INFORMATION
  Report Type: Report from Study
  Country: US (occurrence: US)
  Receive Date: 20250325
  Receipt Date: 20250618
  Transmission Date: 20250717
  Serious: Yes (Other)
  Sender: ABBVIE
  Company Number: US-ABBVIE-6187500

PATIENT
  Age: 69 Year
  Sex: Female
  Weight: 100 kg

DRUGS (3)
  1. HUMIRA [Suspect]
     Active Substance: ADALIMUMAB
     Indication: Rheumatoid arthritis
     Dosage: CITRATE FREE??FORM STRENGTH: 40 MILLIGRAM
     Route: 058
     Dates: start: 20181115, end: 202502
  2. HUMIRA [Suspect]
     Active Substance: ADALIMUMAB
     Dosage: CITRATE FREE??FORM STRENGTH: 40 MILLIGRAM
     Route: 058
     Dates: start: 20250319, end: 20250418
  3. SULFASALAZINE [Concomitant]
     Active Substance: SULFASALAZINE
     Indication: Rheumatoid arthritis

REACTIONS (4)
  - Rotator cuff syndrome [Recovered/Resolved]
  - Exostosis [Recovered/Resolved]
  - Arthralgia [Recovering/Resolving]
  - Fall [Recovered/Resolved]

NARRATIVE: CASE EVENT DATE: 20240101
